FAERS Safety Report 18898990 (Version 3)
Quarter: 2021Q2

REPORT INFORMATION
  Report Type: Report from Study
  Country: NL (occurrence: NL)
  Receive Date: 20210216
  Receipt Date: 20210428
  Transmission Date: 20210717
  Serious: Yes (Death)
  Sender: FDA-Public Use
  Company Number: NVSC2021NL035419

PATIENT
  Age: 82 Year
  Sex: Female

DRUGS (2)
  1. DECITABINE. [Suspect]
     Active Substance: DECITABINE
     Indication: ACUTE MYELOID LEUKAEMIA
     Dosage: 35 MG
     Route: 042
     Dates: start: 20210106, end: 20210115
  2. MIDOSTAURIN [Suspect]
     Active Substance: MIDOSTAURIN
     Indication: ACUTE MYELOID LEUKAEMIA
     Dosage: 100 MG
     Route: 048
     Dates: start: 20210116, end: 20210125

REACTIONS (1)
  - Peritonsillar abscess [Fatal]

NARRATIVE: CASE EVENT DATE: 20210121
